FAERS Safety Report 15661257 (Version 1)
Quarter: 2018Q4

REPORT INFORMATION
  Report Type: Spontaneous
  Country: US (occurrence: US)
  Receive Date: 20181127
  Receipt Date: 20181127
  Transmission Date: 20190205
  Serious: Yes (Life-Threatening, Hospitalization)
  Sender: FDA-Public Use
  Company Number: US-PFIZER INC-2018477733

PATIENT
  Age: 62 Year
  Sex: Female

DRUGS (5)
  1. PAMIDRONATE DISODIUM. [Suspect]
     Active Substance: PAMIDRONATE DISODIUM
     Indication: BONE PAIN
     Dosage: 90 MG, UNK
     Route: 042
  2. CALCITONIN [Suspect]
     Active Substance: CALCITONIN
     Indication: BONE PAIN
     Dosage: UNK UNK, DAILY(INTRANASAL)
     Route: 045
  3. PAMIDRONATE DISODIUM. [Suspect]
     Active Substance: PAMIDRONATE DISODIUM
     Indication: METASTASES TO BONE
  4. VITAMIN D [COLECALCIFEROL] [Concomitant]
     Indication: BLOOD CALCIUM DECREASED
     Dosage: 600 IU, DAILY
  5. CALCIUM CARBONATE. [Concomitant]
     Active Substance: CALCIUM CARBONATE
     Indication: BLOOD CALCIUM DECREASED
     Dosage: UNK(500-750 MG)

REACTIONS (5)
  - Hypocalcaemia [Recovering/Resolving]
  - Nodal rhythm [Recovering/Resolving]
  - Product use in unapproved indication [Recovering/Resolving]
  - Laryngospasm [Recovering/Resolving]
  - Electrocardiogram QT prolonged [Recovering/Resolving]
